FAERS Safety Report 20407117 (Version 1)
Quarter: 2022Q1

REPORT INFORMATION
  Report Type: Spontaneous
  Country: US (occurrence: None)
  Receive Date: 20220131
  Receipt Date: 20220131
  Transmission Date: 20220424
  Serious: No
  Sender: FDA-Public Use
  Company Number: None

PATIENT
  Age: 72 Year
  Sex: Female
  Weight: 92.7 kg

DRUGS (1)
  1. SOTROVIMAB [Suspect]
     Active Substance: SOTROVIMAB
     Indication: COVID-19
     Dates: start: 20220128, end: 20220128

REACTIONS (4)
  - Muscle spasms [None]
  - Dysstasia [None]
  - Tearfulness [None]
  - Infusion related reaction [None]

NARRATIVE: CASE EVENT DATE: 20220128
